FAERS Safety Report 8967621 (Version 2)
Quarter: 2013Q1

REPORT INFORMATION
  Report Type: Spontaneous
  Country: US (occurrence: US)
  Receive Date: 20121217
  Receipt Date: 20130116
  Transmission Date: 20140127
  Serious: No
  Sender: FDA-Public Use
  Company Number: US-009507513-1212USA005090

PATIENT
  Sex: Female

DRUGS (1)
  1. MAXALT [Suspect]
     Indication: MIGRAINE
     Dosage: 0.5 DF, AS NEEDED, NOT EXCEED THREE TABLETS IN 24 HOURS
     Route: 048
     Dates: start: 2005

REACTIONS (2)
  - Drug ineffective [Unknown]
  - Tablet physical issue [Unknown]
